FAERS Safety Report 6959418-5 (Version None)
Quarter: 2010Q3

REPORT INFORMATION
  Report Type: 
  Country: None (occurrence: None)
  Receive Date: 20100831
  Receipt Date: 20100831
  Transmission Date: 20110219
  Serious: Yes (Life-Threatening)
  Sender: FDA-Public Use
  Company Number: None

PATIENT
  Age: 57 Year
  Sex: Female
  Weight: 68.0396 kg

DRUGS (1)
  1. CLONODINE HYDROCHLORIDE [Suspect]
     Indication: HYPERTENSION
     Dosage: 0.1 MG/ TRANSDERMAL
     Route: 062
     Dates: start: 20100201

REACTIONS (1)
  - PRODUCT ADHESION ISSUE [None]
